FAERS Safety Report 6382354-2 (Version None)
Quarter: 2009Q3

REPORT INFORMATION
  Report Type: 
  Country: None (occurrence: None)
  Receive Date: 20090925
  Receipt Date: 20090914
  Transmission Date: 20100115
  Serious: Yes (Disabling)
  Sender: FDA-Public Use
  Company Number: 230175J09USA

PATIENT
  Age: 49 Year
  Sex: Female

DRUGS (8)
  1. REBIF [Suspect]
     Indication: MULTIPLE SCLEROSIS
     Dosage: 44 MCG, 3 IN 1 WEEKS, SUBCUTANEOUS
     Route: 058
     Dates: start: 20090102
  2. ASPIRIN [Concomitant]
  3. LYRICA [Concomitant]
  4. EFFEXOR XR [Concomitant]
  5. DIOVAN/HCT (CO-DIOVAN) [Concomitant]
  6. MULTIVITAMIN (MULTIVITAMIN /00831701/) [Concomitant]
  7. VITAMIN D [Concomitant]
  8. FISH OIL (FISH OIL) [Concomitant]

REACTIONS (3)
  - EUSTACHIAN TUBE OBSTRUCTION [None]
  - HYPOACUSIS [None]
  - MYOSITIS [None]
